FAERS Safety Report 21805119 (Version 3)
Quarter: 2023Q1

REPORT INFORMATION
  Report Type: Spontaneous
  Country: CN (occurrence: CN)
  Receive Date: 20230102
  Receipt Date: 20230220
  Transmission Date: 20230417
  Serious: Yes (Other)
  Sender: FDA-Public Use
  Company Number: CN-ASTELLAS-2022US045935

PATIENT
  Age: 32 Year
  Sex: Male

DRUGS (1)
  1. VESICARE [Suspect]
     Active Substance: SOLIFENACIN SUCCINATE
     Indication: Pollakiuria
     Route: 048
     Dates: start: 2022, end: 2022

REACTIONS (17)
  - Haematemesis [Not Recovered/Not Resolved]
  - Gastrooesophageal reflux disease [Not Recovered/Not Resolved]
  - Malaise [Not Recovered/Not Resolved]
  - Depression [Not Recovered/Not Resolved]
  - Suicidal ideation [Not Recovered/Not Resolved]
  - Muscular weakness [Not Recovered/Not Resolved]
  - Listless [Not Recovered/Not Resolved]
  - Oesophageal hypomotility [Unknown]
  - Gastrooesophageal sphincter insufficiency [Unknown]
  - Poor quality sleep [Unknown]
  - Eating disorder [Unknown]
  - Impaired quality of life [Unknown]
  - Mental impairment [Unknown]
  - Anxiety [Unknown]
  - Illness [Unknown]
  - Asthenia [Unknown]
  - Gastrooesophageal reflux disease [Unknown]

NARRATIVE: CASE EVENT DATE: 20220101
